FAERS Safety Report 6390680-6 (Version None)
Quarter: 2009Q4

REPORT INFORMATION
  Report Type: 
  Country: None (occurrence: None)
  Receive Date: 20091006
  Receipt Date: 20090924
  Transmission Date: 20100525
  Serious: Yes (Hospitalization)
  Sender: FDA-Public Use
  Company Number: DE-SANOFI-SYNTHELABO-A04200901390

PATIENT
  Sex: Male

DRUGS (2)
  1. UROXATRAL [Suspect]
     Indication: DRUG USE FOR UNKNOWN INDICATION
     Route: 048
     Dates: start: 20090101, end: 20090101
  2. UROXATRAL [Suspect]
     Route: 048
     Dates: start: 20090101, end: 20090101

REACTIONS (5)
  - ABDOMINAL PAIN LOWER [None]
  - COLITIS ISCHAEMIC [None]
  - DIARRHOEA [None]
  - INTESTINAL HAEMORRHAGE [None]
  - SYNCOPE [None]
